FAERS Safety Report 15233449 (Version 2)
Quarter: 2018Q4

REPORT INFORMATION
  Report Type: Spontaneous
  Country: PL (occurrence: PL)
  Receive Date: 20180802
  Receipt Date: 20181010
  Transmission Date: 20190204
  Serious: Yes (Hospitalization)
  Sender: FDA-Public Use
  Company Number: PL-MYLANLABS-2018M1056378

PATIENT
  Age: 51 Year
  Sex: Female

DRUGS (10)
  1. KETOPROFEN. [Suspect]
     Active Substance: KETOPROFEN
     Indication: HEADACHE
     Dosage: UNK
     Route: 065
  2. BISOPROLOL [Suspect]
     Active Substance: BISOPROLOL
     Indication: HYPERTENSION
     Dosage: UNK
     Route: 065
  3. TRAMADOL HYDROCHLORID/PARACETAMOL [Concomitant]
     Active Substance: ACETAMINOPHEN\TRAMADOL HYDROCHLORIDE
     Indication: PRODUCT USED FOR UNKNOWN INDICATION
     Dosage: UNK
     Route: 065
  4. GESTODENO+ETINILESTRADIOL [Suspect]
     Active Substance: ETHINYL ESTRADIOL\GESTODENE
     Indication: MENSTRUATION IRREGULAR
     Dosage: UNK
     Route: 065
  5. ENOXAPARINA [Concomitant]
     Active Substance: ENOXAPARIN
     Indication: PRODUCT USED FOR UNKNOWN INDICATION
     Dosage: 0.8 ML, QD
     Route: 065
  6. HYDROCHLOROTHIAZIDE. [Concomitant]
     Active Substance: HYDROCHLOROTHIAZIDE
     Indication: HYPERTENSION
     Dosage: UNK
  7. TRAMADOL HYDROCHLORIDE AND PARACETAMOL [Concomitant]
     Active Substance: ACETAMINOPHEN\TRAMADOL HYDROCHLORIDE
     Indication: PRODUCT USED FOR UNKNOWN INDICATION
     Dosage: UNK
  8. BISOPROLOL [Concomitant]
     Active Substance: BISOPROLOL
     Indication: HYPERTENSION
     Dosage: UNK
  9. ASPIRIN                            /00002701/ [Concomitant]
     Active Substance: ASPIRIN
     Indication: PRODUCT USED FOR UNKNOWN INDICATION
     Dosage: UNK
     Route: 065
  10. LOSARTAN. [Concomitant]
     Active Substance: LOSARTAN
     Indication: HYPERTENSION
     Dosage: UNK
     Route: 065

REACTIONS (27)
  - Haemorrhagic infarction [Recovered/Resolved]
  - Cerebral venous thrombosis [Recovered/Resolved]
  - Hyperreflexia [Recovered/Resolved]
  - Photophobia [Recovered/Resolved]
  - Intracranial venous sinus thrombosis [Recovered/Resolved]
  - Coagulopathy [Recovered/Resolved]
  - Product use in unapproved indication [Recovered/Resolved]
  - Vomiting [Recovered/Resolved]
  - Scintillating scotoma [Unknown]
  - Fibrin D dimer increased [Recovered/Resolved]
  - Monoparesis [Recovered/Resolved]
  - Hyperacusis [Recovered/Resolved]
  - Memory impairment [Not Recovered/Not Resolved]
  - Low density lipoprotein increased [Unknown]
  - Paraesthesia [Recovered/Resolved]
  - Obesity [Unknown]
  - Drug ineffective [Unknown]
  - Cerebrovascular accident [Recovered/Resolved]
  - Blood pressure increased [Recovered/Resolved]
  - Pain in extremity [Recovered/Resolved]
  - Nausea [Recovered/Resolved]
  - Embolism venous [Unknown]
  - Menorrhagia [Unknown]
  - Deep vein thrombosis [Recovered/Resolved]
  - Transverse sinus thrombosis [Recovered/Resolved]
  - Headache [Recovered/Resolved]
  - Visual field defect [Recovered/Resolved]

NARRATIVE: CASE EVENT DATE: 2014
